FAERS Safety Report 16039001 (Version 2)
Quarter: 2019Q1

REPORT INFORMATION
  Report Type: Spontaneous
  Country: FR (occurrence: FR)
  Receive Date: 20190306
  Receipt Date: 20190316
  Transmission Date: 20190418
  Serious: Yes (Other)
  Sender: FDA-Public Use
  Company Number: PHHY2019FR048511

PATIENT
  Age: 28 Year
  Sex: Male
  Weight: 101 kg

DRUGS (2)
  1. TACROLIMUS. [Suspect]
     Active Substance: TACROLIMUS
     Indication: RENAL TRANSPLANT
     Dosage: 16 MG, QD
     Route: 065
     Dates: start: 20180124
  2. SOLU-MEDROL [Concomitant]
     Active Substance: METHYLPREDNISOLONE SODIUM SUCCINATE
     Indication: IMMUNOSUPPRESSANT DRUG THERAPY
     Dosage: 1000 (UNITS NOT SPECIFIED), UNKNOWN FREQ.
     Route: 065

REACTIONS (1)
  - IgA nephropathy [Not Recovered/Not Resolved]

NARRATIVE: CASE EVENT DATE: 20180828
